FAERS Safety Report 11722558 (Version 2)
Quarter: 2016Q3

REPORT INFORMATION
  Report Type: Report from Study
  Country: US (occurrence: US)
  Receive Date: 20151111
  Receipt Date: 20160701
  Transmission Date: 20161109
  Serious: Yes (Death)
  Sender: FDA-Public Use
  Company Number: PHEH2015US023098

PATIENT
  Sex: Male

DRUGS (1)
  1. TOBI PODHALER [Suspect]
     Active Substance: TOBRAMYCIN
     Indication: CYSTIC FIBROSIS
     Dosage: 4 DF(ALT 28 DAYS ON, 28 DAYS OFF), BID
     Route: 055
     Dates: start: 20150729

REACTIONS (2)
  - Pseudomonas infection [Fatal]
  - Cystic fibrosis [Fatal]
